FAERS Safety Report 14923547 (Version 12)
Quarter: 2019Q1

REPORT INFORMATION
  Report Type: Report from Study
  Country: NL (occurrence: NL)
  Receive Date: 20180522
  Receipt Date: 20190215
  Transmission Date: 20190417
  Serious: Yes (Other)
  Sender: FDA-Public Use
  Company Number: NL-PFIZER INC-2018206206

PATIENT
  Age: 51 Year
  Sex: Female

DRUGS (2)
  1. IBUPROFEN. [Suspect]
     Active Substance: IBUPROFEN
     Dosage: UNK
  2. DICLOFENAC [Suspect]
     Active Substance: DICLOFENAC
     Dosage: UNK

REACTIONS (4)
  - Circulatory collapse [Unknown]
  - Hypersensitivity [Unknown]
  - Palpitations [Unknown]
  - Angioedema [Unknown]
